FAERS Safety Report 4637522-4 (Version None)
Quarter: 2005Q2

REPORT INFORMATION
  Report Type: 
  Country: None (occurrence: None)
  Receive Date: 20050418
  Receipt Date: 20050318
  Transmission Date: 20051028
  Serious: Yes (Other)
  Sender: FDA-Public Use
  Company Number: GB-JNJFOC-20050305477

PATIENT
  Sex: Male
  Weight: 77.7 kg

DRUGS (2)
  1. RISPERDAL CONSTA [Suspect]
     Indication: PSYCHOTIC DISORDER
     Route: 030
  2. CLONAZEPAM [Concomitant]
     Indication: AGITATION

REACTIONS (2)
  - EJACULATION FAILURE [None]
  - EOSINOPHILIA [None]
